FAERS Safety Report 5587217-8 (Version None)
Quarter: 2008Q1

REPORT INFORMATION
  Report Type: 
  Country: None (occurrence: None)
  Receive Date: 20080110
  Receipt Date: 20070725
  Transmission Date: 20080703
  Serious: No
  Sender: FDA-Public Use
  Company Number: US-BRISTOL-MYERS SQUIBB COMPANY-13844311

PATIENT
  Sex: Female
  Weight: 46 kg

DRUGS (1)
  1. CARDIOLITE INJ [Suspect]
     Route: 042
     Dates: start: 20070531

REACTIONS (1)
  - THROMBOCYTOPENIA [None]
